FAERS Safety Report 6866547-3 (Version None)
Quarter: 2010Q2

REPORT INFORMATION
  Report Type: 
  Country: None (occurrence: None)
  Receive Date: 20100528
  Receipt Date: 20100423
  Transmission Date: 20101027
  Serious: No
  Sender: FDA-Public Use
  Company Number: 2009205452

PATIENT
  Age: 44 Year
  Sex: Male
  Weight: 49.9 kg

DRUGS (1)
  1. TOVIAZ [Suspect]
     Indication: MICTURITION DISORDER
     Dosage: 8 MG, 1X/DAY EVERY DAY
     Dates: start: 20090401

REACTIONS (2)
  - DRUG INEFFECTIVE [None]
  - NOCTURIA [None]
